FAERS Safety Report 13068113 (Version 3)
Quarter: 2017Q1

REPORT INFORMATION
  Report Type: Spontaneous
  Country: AR (occurrence: AR)
  Receive Date: 20161228
  Receipt Date: 20170126
  Transmission Date: 20170428
  Serious: Yes (Other)
  Sender: FDA-Public Use
  Company Number: PHHY2016AR178515

PATIENT
  Age: 78 Year
  Sex: Female

DRUGS (1)
  1. ONBREZ [Suspect]
     Active Substance: INDACATEROL
     Indication: CHRONIC OBSTRUCTIVE PULMONARY DISEASE
     Dosage: UNK
     Route: 065
     Dates: start: 20160722, end: 20161110

REACTIONS (4)
  - Oedema peripheral [Unknown]
  - Face oedema [Unknown]
  - Swelling [Unknown]
  - Rash [Unknown]

NARRATIVE: CASE EVENT DATE: 201610
